FAERS Safety Report 11642182 (Version 4)
Quarter: 2016Q1

REPORT INFORMATION
  Report Type: Report from Study
  Country: US (occurrence: US)
  Receive Date: 20151019
  Receipt Date: 20160322
  Transmission Date: 20160525
  Serious: No
  Sender: FDA-Public Use
  Company Number: PHEH2015US020714

PATIENT
  Age: 41 Year
  Sex: Female
  Weight: 61.22 kg

DRUGS (1)
  1. GILENYA [Suspect]
     Active Substance: FINGOLIMOD HYDROCHLORIDE
     Indication: MULTIPLE SCLEROSIS
     Dosage: 0.5 MG, QD
     Route: 048
     Dates: start: 20151009

REACTIONS (5)
  - Fatigue [Unknown]
  - Alopecia [Unknown]
  - Sinusitis [Unknown]
  - Nasopharyngitis [Unknown]
  - Sinus headache [Unknown]

NARRATIVE: CASE EVENT DATE: 20151009
